FAERS Safety Report 8469706-1 (Version None)
Quarter: 2012Q2

REPORT INFORMATION
  Report Type: 
  Country: None (occurrence: None)
  Receive Date: 20120626
  Receipt Date: 20120622
  Transmission Date: 20120825
  Serious: No
  Sender: FDA-Public Use
  Company Number: US-PFIZER INC-2012151083

PATIENT
  Sex: Female
  Weight: 53.061 kg

DRUGS (8)
  1. AMBIEN [Concomitant]
     Indication: SLEEP DISORDER
     Dosage: UNK, DAILY
  2. TRAMADOL [Concomitant]
     Indication: PAIN
     Dosage: 50 MG, AS NEEDED
  3. PREMARIN [Suspect]
     Indication: HOT FLUSH
     Dosage: 0.625 MG, UNK
     Dates: start: 19800101
  4. PREMARIN [Suspect]
     Dosage: 1.25 MG, DAILY
  5. DIAZEPAM [Concomitant]
     Indication: SCREAMING
  6. DIAZEPAM [Concomitant]
     Indication: ANXIETY
     Dosage: 5 MG, 2X/DAY
  7. LEVOTHYROXINE [Concomitant]
     Indication: THYROID DISORDER
     Dosage: 125 UG, DAILY
  8. DIAZEPAM [Concomitant]
     Indication: TREMOR

REACTIONS (5)
  - HOT FLUSH [None]
  - ASTHENIA [None]
  - HYPERHIDROSIS [None]
  - SUFFOCATION FEELING [None]
  - COLD SWEAT [None]
